FAERS Safety Report 7294887-5 (Version None)
Quarter: 2011Q1

REPORT INFORMATION
  Report Type: 
  Country: None (occurrence: None)
  Receive Date: 20110216
  Receipt Date: 20110203
  Transmission Date: 20110831
  Serious: Yes (Life-Threatening, Hospitalization, Disabling, Other)
  Sender: FDA-Public Use
  Company Number: GB-BAYER-201025712GPV

PATIENT
  Age: 41 Year
  Sex: Female

DRUGS (1)
  1. MIRENA [Suspect]
     Indication: CONTRACEPTION
     Route: 015
     Dates: start: 20090301

REACTIONS (14)
  - TACHYCARDIA [None]
  - MYALGIA [None]
  - NECROTISING FASCIITIS STREPTOCOCCAL [None]
  - HYPOTENSION [None]
  - POST PROCEDURAL HAEMORRHAGE [None]
  - DISSEMINATED INTRAVASCULAR COAGULATION [None]
  - PYREXIA [None]
  - SEPTIC SHOCK [None]
  - EXTREMITY NECROSIS [None]
  - FATIGUE [None]
  - CARDIAC ARREST [None]
  - STREPTOCOCCAL SEPSIS [None]
  - MALAISE [None]
  - TACHYPNOEA [None]
